FAERS Safety Report 10962622 (Version 1)
Quarter: 2015Q1

REPORT INFORMATION
  Report Type: Spontaneous
  Country: IT (occurrence: IT)
  Receive Date: 20150327
  Receipt Date: 20150327
  Transmission Date: 20150721
  Serious: Yes (Hospitalization)
  Sender: FDA-Public Use
  Company Number: IT-PFIZER INC-2015105613

PATIENT
  Age: 27 Year
  Sex: Female

DRUGS (7)
  1. IMOVANE [Suspect]
     Active Substance: ZOPICLONE
     Dosage: 45 MG, TOTAL
     Route: 048
     Dates: start: 20150314, end: 20150315
  2. CAFFEINE CITRATE. [Suspect]
     Active Substance: CAFFEINE CITRATE
     Dosage: 1800 MG, TOTAL
     Route: 048
     Dates: start: 20150314, end: 20150315
  3. TRANSENE [Suspect]
     Active Substance: CLORAZEPATE DIPOTASSIUM
     Dosage: 60 MG, TOTAL
     Route: 048
     Dates: start: 20150314, end: 20150315
  4. EPHEDRINE HCL [Suspect]
     Active Substance: EPHEDRINE HYDROCHLORIDE
     Dosage: 225 MG, TOTAL
     Route: 048
     Dates: start: 20150314, end: 20150315
  5. EPHEDRINE HCL [Suspect]
     Active Substance: EPHEDRINE HYDROCHLORIDE
     Indication: MALNUTRITION
     Dosage: UNK
     Route: 048
  6. ZOLOFT [Suspect]
     Active Substance: SERTRALINE HYDROCHLORIDE
     Dosage: 100 MG, TOTAL
     Route: 048
     Dates: start: 20150314, end: 20150315
  7. ANSIOLIN [Suspect]
     Active Substance: DIAZEPAM
     Dosage: 30 MG, TOTAL
     Route: 048
     Dates: start: 20150314, end: 20150315

REACTIONS (2)
  - Suicide attempt [Recovering/Resolving]
  - Drug abuse [Recovering/Resolving]

NARRATIVE: CASE EVENT DATE: 20150314
